FAERS Safety Report 5618930-1 (Version None)
Quarter: 2008Q1

REPORT INFORMATION
  Report Type: 
  Country: None (occurrence: None)
  Receive Date: 20080207
  Receipt Date: 20080129
  Transmission Date: 20080703
  Serious: Yes (Other)
  Sender: FDA-Public Use
  Company Number: US-PFIZER INC-2007094258

PATIENT
  Sex: Female

DRUGS (5)
  1. LYRICA [Suspect]
     Indication: NEURALGIA
  2. NEURONTIN [Suspect]
     Indication: NEURALGIA
     Dosage: DAILY DOSE:900MG
  3. FENTANYL [Concomitant]
     Route: 062
  4. TOPROL-XL [Concomitant]
  5. PREDNISONE TAB [Concomitant]

REACTIONS (2)
  - DISORIENTATION [None]
  - MENTAL DISORDER [None]
